FAERS Safety Report 5284440-7 (Version None)
Quarter: 2007Q1

REPORT INFORMATION
  Report Type: 
  Country: None (occurrence: None)
  Receive Date: 20070328
  Receipt Date: 20070314
  Transmission Date: 20070707
  Serious: Yes (Life-Threatening)
  Sender: FDA-Public Use
  Company Number: 15981

PATIENT
  Sex: Female

DRUGS (8)
  1. AMIODARONE HCL [Suspect]
     Indication: ATRIAL FIBRILLATION
     Dosage: 300 MG FREQ IV
     Route: 042
     Dates: start: 20070228, end: 20070228
  2. CALCICHEW [Concomitant]
  3. CEFTAZIDIME [Concomitant]
  4. CICLESONIDE [Concomitant]
  5. GLYCERYL TRINITRATE [Concomitant]
  6. METRONIDAZOLE [Concomitant]
  7. PREDNISOLONE [Concomitant]
  8. SALMETEROL [Concomitant]

REACTIONS (4)
  - BRONCHOSPASM [None]
  - CHILLS [None]
  - TACHYCARDIA [None]
  - TACHYPNOEA [None]
